FAERS Safety Report 9166256 (Version 1)
Quarter: 2013Q1

REPORT INFORMATION
  Report Type: Spontaneous
  Country: FR (occurrence: FR)
  Receive Date: 20130315
  Receipt Date: 20130315
  Transmission Date: 20140127
  Serious: Yes (Other)
  Sender: FDA-Public Use
  Company Number: FR-TEVA-390508ISR

PATIENT
  Sex: Female
  Weight: 131 kg

DRUGS (9)
  1. METFORMINE [Suspect]
     Indication: TYPE 2 DIABETES MELLITUS
     Dosage: 2 DOSAGE FORMS DAILY;
     Route: 048
     Dates: start: 201007
  2. ROACTEMRA [Suspect]
     Indication: RHEUMATOID ARTHRITIS
     Route: 042
     Dates: start: 20100924, end: 20110301
  3. VICTOZA [Suspect]
     Indication: TYPE 2 DIABETES MELLITUS
     Dosage: 1.2 MILLIGRAM DAILY;
     Route: 058
     Dates: start: 201007
  4. FARLUTAL [Suspect]
     Indication: GENITAL HAEMORRHAGE
     Route: 030
     Dates: start: 20091229
  5. FUROSEMIDE [Suspect]
     Indication: HYPERTENSION
     Dosage: 20 MILLIGRAM DAILY;
     Route: 048
  6. GLICLAZIDE [Suspect]
     Indication: TYPE 2 DIABETES MELLITUS
     Dosage: 60 MILLIGRAM DAILY;
     Route: 048
     Dates: start: 201007
  7. KERLONE [Suspect]
     Indication: HYPERTENSION
     Dosage: 20 MILLIGRAM DAILY;
     Route: 048
     Dates: start: 201001
  8. AMLODIPINE [Suspect]
     Indication: HYPERTENSION
     Dosage: 10 MILLIGRAM DAILY;
     Route: 048
     Dates: start: 201001
  9. ALLOPURINOL [Suspect]
     Indication: HYPERURICAEMIA
     Dosage: 100 MILLIGRAM DAILY;
     Route: 048
     Dates: start: 201001

REACTIONS (1)
  - Oedema [Not Recovered/Not Resolved]
